FAERS Safety Report 20341237 (Version 2)
Quarter: 2022Q1

REPORT INFORMATION
  Report Type: Spontaneous
  Country: US (occurrence: None)
  Receive Date: 20220117
  Receipt Date: 20220223
  Transmission Date: 20220424
  Serious: No
  Sender: FDA-Public Use
  Company Number: 2022A018516

PATIENT
  Sex: Female
  Weight: 104.3 kg

DRUGS (1)
  1. BYDUREON BCISE [Suspect]
     Active Substance: EXENATIDE
     Indication: Type 2 diabetes mellitus
     Route: 058

REACTIONS (5)
  - Injection site mass [Recovered/Resolved]
  - Injection site pain [Recovered/Resolved]
  - Device use issue [Unknown]
  - Device malfunction [Unknown]
  - Device leakage [Unknown]
